FAERS Safety Report 23913009 (Version 1)
Quarter: 2024Q2

REPORT INFORMATION
  Report Type: Spontaneous
  Country: FR (occurrence: FR)
  Receive Date: 20240529
  Receipt Date: 20240529
  Transmission Date: 20240715
  Serious: Yes (Other)
  Sender: FDA-Public Use
  Company Number: FR-AFSSAPS-RN2024000554

PATIENT
  Age: 49 Year
  Sex: Male

DRUGS (1)
  1. IBUPROFEN [Suspect]
     Active Substance: IBUPROFEN
     Indication: Product used for unknown indication
     Dosage: 7.2 GRAM (3 TABLETS OF 400 MG PER DOSE FROM 16/4 UNTIL 18/4 MIDDAY INCLUDED (IN ADDITION TO 1 TABLET
     Route: 048
     Dates: start: 20240416

REACTIONS (3)
  - Abdominal pain [Recovering/Resolving]
  - Incorrect dose administered [Recovered/Resolved]
  - Accidental overdose [Recovered/Resolved]

NARRATIVE: CASE EVENT DATE: 20240416
